FAERS Safety Report 5619319-1 (Version None)
Quarter: 2008Q1

REPORT INFORMATION
  Report Type: 
  Country: None (occurrence: None)
  Receive Date: 20080114
  Receipt Date: 20070312
  Transmission Date: 20080703
  Serious: Yes (Hospitalization)
  Sender: FDA-Public Use
  Company Number: A03200701972

PATIENT
  Age: 78 Year
  Sex: Male
  Weight: 88.43 kg

DRUGS (7)
  1. PLAVIX [Suspect]
     Indication: STENT PLACEMENT
     Dosage: 75 MG QD - ORAL
     Route: 048
     Dates: start: 20070306
  2. PRAVASTATIN SODIUM [Concomitant]
  3. ACEBUTOLOL [Concomitant]
  4. FINASTERIDE [Concomitant]
  5. TAMSULOSIN HCL [Concomitant]
  6. INSULIN ASPART [Concomitant]
  7. INSULIN GLARGINE [Concomitant]

REACTIONS (1)
  - GASTRIC ULCER [None]
